FAERS Safety Report 21339612 (Version 1)
Quarter: 2022Q3

REPORT INFORMATION
  Report Type: Spontaneous
  Country: US (occurrence: US)
  Receive Date: 20220915
  Receipt Date: 20220915
  Transmission Date: 20221027
  Serious: No
  Sender: FDA-Public Use
  Company Number: US-SA-SAC20220912000738

PATIENT
  Sex: Female

DRUGS (17)
  1. DUPIXENT [Suspect]
     Active Substance: DUPILUMAB
     Indication: Dermatitis atopic
     Dosage: 300 MG QOW
     Route: 058
  2. ASPIRIN [Concomitant]
     Active Substance: ASPIRIN
  3. CLONIDINE HYDROCHLORIDE [Concomitant]
     Active Substance: CLONIDINE HYDROCHLORIDE
  4. COREG [Concomitant]
     Active Substance: CARVEDILOL
  5. FARXIGA [Concomitant]
     Active Substance: DAPAGLIFLOZIN PROPANEDIOL
  6. JANUVIA [Concomitant]
     Active Substance: SITAGLIPTIN PHOSPHATE
  7. LASIX [Concomitant]
     Active Substance: FUROSEMIDE
  8. LEVEMIR [Concomitant]
     Active Substance: INSULIN DETEMIR
  9. LOSARTAN POTASSIUM [Concomitant]
     Active Substance: LOSARTAN POTASSIUM
  10. NIFEDIPINE [Concomitant]
     Active Substance: NIFEDIPINE
  11. PEPCID [Concomitant]
     Active Substance: FAMOTIDINE
  12. PLAVIX [Concomitant]
     Active Substance: CLOPIDOGREL BISULFATE
  13. SINGULAIR [Concomitant]
     Active Substance: MONTELUKAST SODIUM
  14. TRAZODONE HCL [Concomitant]
     Active Substance: TRAZODONE HYDROCHLORIDE
  15. VITAMIN D3 [Concomitant]
     Active Substance: CHOLECALCIFEROL
  16. ZINC [Concomitant]
     Active Substance: ZINC
  17. TRIAMCINOLONE [Concomitant]
     Active Substance: TRIAMCINOLONE

REACTIONS (2)
  - Dermatitis atopic [Recovered/Resolved]
  - Pruritus [Recovered/Resolved]
